FAERS Safety Report 19211460 (Version 1)
Quarter: 2021Q2

REPORT INFORMATION
  Report Type: Spontaneous
  Country: US (occurrence: US)
  Receive Date: 20210503
  Receipt Date: 20210503
  Transmission Date: 20210717
  Serious: No
  Sender: FDA-Public Use
  Company Number: None

PATIENT
  Age: 69 Year
  Sex: Male

DRUGS (2)
  1. COBICISTAT/ELVITEGRAVIR/EMTRICITABINE/TENOFOVIR (COBICISTAT/ELVITEGRAVIR/EMTRICITABINE/TENOFOVIR AF TAB,ORAL) [Suspect]
     Active Substance: COBICISTAT\ELVITEGRAVIR\EMTRICITABINE\TENOFOVIR
     Route: 048
     Dates: start: 20160923, end: 20210417
  2. CLINDAMYCIN (CLINDAMYCIN HCL 300MG CAP) [Suspect]
     Active Substance: CLINDAMYCIN HYDROCHLORIDE
     Indication: INFECTION PROPHYLAXIS
     Route: 048
     Dates: start: 20210408, end: 20210411

REACTIONS (11)
  - Gastrooesophageal reflux disease [None]
  - International normalised ratio increased [None]
  - Autoimmune disorder [None]
  - Liver injury [None]
  - Serum ferritin increased [None]
  - Blood creatine phosphokinase increased [None]
  - Hepatitis cholestatic [None]
  - Infection [None]
  - Intentional product use issue [None]
  - Transaminases increased [None]
  - Fatigue [None]

NARRATIVE: CASE EVENT DATE: 20210411
